FAERS Safety Report 4422628-5 (Version None)
Quarter: 2004Q3

REPORT INFORMATION
  Report Type: 
  Country: None (occurrence: None)
  Receive Date: 20040713
  Receipt Date: 20040301
  Transmission Date: 20050211
  Serious: No
  Sender: FDA-Public Use
  Company Number: PHEH2004US02569

PATIENT
  Age: 32 Year
  Sex: Female

DRUGS (2)
  1. ELIDEL [Suspect]
     Indication: DERMATITIS
     Dosage: ONCE/SINGLE, TOPICAL
     Route: 061
     Dates: start: 20040227, end: 20040227
  2. TRIMETOPRIM-SULFA ^GEA^ (SULFAMETHOXAZOLE) [Concomitant]

REACTIONS (4)
  - APPLICATION SITE PRURITUS [None]
  - APPLICATION SITE WARMTH [None]
  - EYE IRRITATION [None]
  - RASH [None]
